FAERS Safety Report 7476674-8 (Version None)
Quarter: 2011Q2

REPORT INFORMATION
  Report Type: 
  Country: None (occurrence: None)
  Receive Date: 20110512
  Receipt Date: 20110510
  Transmission Date: 20111010
  Serious: Yes (Life-Threatening, Other)
  Sender: FDA-Public Use
  Company Number: GB-PFIZER INC-2011100499

PATIENT
  Age: 43 Year
  Sex: Female

DRUGS (3)
  1. CITALOPRAM [Concomitant]
  2. VARENICLINE TARTRATE [Suspect]
     Dosage: 1 MG, 2X/DAY
     Route: 048
     Dates: start: 20110302, end: 20110419
  3. ALCOHOL [Suspect]

REACTIONS (5)
  - MOOD ALTERED [None]
  - AGGRESSION [None]
  - ALCOHOL ABUSE [None]
  - SUICIDE ATTEMPT [None]
  - SUICIDAL IDEATION [None]
